FAERS Safety Report 5212029-4 (Version None)
Quarter: 2007Q1

REPORT INFORMATION
  Report Type: 
  Country: None (occurrence: None)
  Receive Date: 20070117
  Receipt Date: 20070117
  Transmission Date: 20070707
  Serious: Yes (Hospitalization)
  Sender: FDA-Public Use
  Company Number: None

PATIENT
  Age: 61 Year
  Sex: Female

DRUGS (7)
  1. IMATINIB MESYLATE [Suspect]
     Indication: GLIOBLASTOMA MULTIFORME
     Dosage: 500 MG BID
     Dates: start: 20061214, end: 20061226
  2. PTK [Suspect]
     Indication: GLIOBLASTOMA MULTIFORME
     Dosage: 1250 MG BID
     Dates: start: 20061207, end: 20061226
  3. HYDROXYUREA [Suspect]
     Indication: GLIOBLASTOMA MULTIFORME
     Dosage: 500 MG BID
     Dates: start: 20061214, end: 20061226
  4. NORVASC [Concomitant]
  5. DECADRON [Concomitant]
  6. DILANTIN [Concomitant]
  7. LIPITOR [Concomitant]

REACTIONS (7)
  - CONFUSIONAL STATE [None]
  - DRUG TOXICITY [None]
  - FATIGUE [None]
  - HALLUCINATION [None]
  - HYPOAESTHESIA [None]
  - MENTAL STATUS CHANGES [None]
  - VISUAL DISTURBANCE [None]
